FAERS Safety Report 5335137-6 (Version None)
Quarter: 2007Q2

REPORT INFORMATION
  Report Type: 
  Country: None (occurrence: None)
  Receive Date: 20070525
  Receipt Date: 20070518
  Transmission Date: 20071010
  Serious: Yes (Hospitalization)
  Sender: FDA-Public Use
  Company Number: JP-MERCK-0705USA03878

PATIENT
  Age: 61 Year
  Sex: Male

DRUGS (6)
  1. VASOTEC [Suspect]
     Indication: HYPERTENSION
     Route: 048
  2. ASPIRIN [Suspect]
     Indication: ANTICOAGULANT THERAPY
     Route: 048
  3. METOPROLOL TARTRATE [Suspect]
     Indication: ARRHYTHMIA
     Route: 048
  4. SIGMART [Suspect]
     Indication: ARRHYTHMIA
     Route: 048
  5. FRANDOL [Suspect]
     Indication: ANGINA PECTORIS
     Route: 048
  6. NITRENDIPINE [Suspect]
     Indication: ANGINA PECTORIS
     Route: 048

REACTIONS (2)
  - ADVERSE EVENT [None]
  - HEPATIC FUNCTION ABNORMAL [None]
